FAERS Safety Report 8302390-6 (Version None)
Quarter: 2012Q2

REPORT INFORMATION
  Report Type: 
  Country: None (occurrence: None)
  Receive Date: 20120420
  Receipt Date: 20120414
  Transmission Date: 20120825
  Serious: Yes (Hospitalization, Other)
  Sender: FDA-Public Use
  Company Number: AU-B.I. PHARMACEUTICALS,INC./RIDGEFIELD-2012-AU-00755AU

PATIENT
  Sex: Male

DRUGS (1)
  1. TRAJENTA [Suspect]
     Dates: end: 20120301

REACTIONS (4)
  - ANAPHYLACTIC REACTION [None]
  - RASH [None]
  - RESPIRATORY ARREST [None]
  - JOINT SWELLING [None]
